FAERS Safety Report 7215937-8 (Version None)
Quarter: 2011Q1

REPORT INFORMATION
  Report Type: 
  Country: None (occurrence: None)
  Receive Date: 20110104
  Receipt Date: 20110104
  Transmission Date: 20110831
  Serious: Yes (Death)
  Sender: FDA-Public Use
  Company Number: None

PATIENT
  Age: 63 Year
  Sex: Female

DRUGS (5)
  1. REVLIMID [Suspect]
     Indication: MULTIPLE MYELOMA
     Dosage: 15MG DAILY ORALLY
     Route: 048
     Dates: start: 20091201, end: 20101201
  2. PERCOCET [Concomitant]
  3. WARFARIN SODIUM [Concomitant]
  4. DEXAMETHASONE [Concomitant]
  5. LISINOPRIL [Concomitant]

REACTIONS (2)
  - COMA [None]
  - CEREBRAL HAEMORRHAGE [None]
